FAERS Safety Report 4672364-5 (Version None)
Quarter: 2005Q2

REPORT INFORMATION
  Report Type: 
  Country: None (occurrence: None)
  Receive Date: 20050520
  Receipt Date: 20050428
  Transmission Date: 20051028
  Serious: Yes (Death)
  Sender: FDA-Public Use
  Company Number: 2005JP001032

PATIENT
  Age: 74 Year
  Sex: Male

DRUGS (1)
  1. FK506 (TACROLIMUS) [Suspect]
     Indication: CORONARY ARTERY RESTENOSIS
     Dates: start: 20041201

REACTIONS (3)
  - CARDIAC DEATH [None]
  - MYOCARDIAL ISCHAEMIA [None]
  - VENTRICULAR FIBRILLATION [None]
